FAERS Safety Report 7402361-8 (Version None)
Quarter: 2011Q2

REPORT INFORMATION
  Report Type: 
  Country: None (occurrence: None)
  Receive Date: 20110408
  Receipt Date: 20110404
  Transmission Date: 20111010
  Serious: Yes (Other)
  Sender: FDA-Public Use
  Company Number: US-SANOFI-AVENTIS-2011SA020726

PATIENT
  Age: 69 Year
  Sex: Male

DRUGS (2)
  1. METOPROLOL [Concomitant]
  2. MULTAQ [Suspect]
     Indication: ATRIAL FIBRILLATION
     Route: 048
     Dates: start: 20110301

REACTIONS (1)
  - ATRIAL FIBRILLATION [None]
